FAERS Safety Report 7995708-5 (Version None)
Quarter: 2011Q4

REPORT INFORMATION
  Report Type: 
  Country: None (occurrence: None)
  Receive Date: 20111220
  Receipt Date: 20111214
  Transmission Date: 20120403
  Serious: Yes (Other)
  Sender: FDA-Public Use
  Company Number: US-SANOFI-AVENTIS-2011SA069712

PATIENT
  Age: 67 Year
  Sex: Male
  Weight: 93 kg

DRUGS (11)
  1. ASPIRIN [Suspect]
     Route: 048
     Dates: start: 20030101, end: 20090101
  2. LOVENOX [Concomitant]
     Dates: start: 20090101, end: 20090101
  3. PRAVASTATIN [Concomitant]
  4. ASPIRIN [Suspect]
     Route: 048
     Dates: start: 20090101
  5. JANUVIA [Concomitant]
  6. LISINOPRIL [Concomitant]
  7. METFORMIN HCL [Concomitant]
  8. ZETIA [Concomitant]
  9. PLAVIX [Suspect]
     Route: 048
     Dates: start: 20090101, end: 20111213
  10. PLAVIX [Suspect]
     Route: 048
     Dates: start: 20030101, end: 20090101
  11. ALL OTHER THERAPEUTIC PRODUCTS [Concomitant]

REACTIONS (3)
  - WEIGHT INCREASED [None]
  - ABDOMINAL PAIN UPPER [None]
  - TRANSIENT ISCHAEMIC ATTACK [None]
